FAERS Safety Report 26114079 (Version 1)
Quarter: 2025Q4

REPORT INFORMATION
  Report Type: Spontaneous
  Country: US (occurrence: US)
  Receive Date: 20251202
  Receipt Date: 20251202
  Transmission Date: 20260117
  Serious: No
  Sender: MYLAN
  Company Number: US-MYLANLABS-2025M1099176

PATIENT
  Sex: Female
  Weight: 61.23 kg

DRUGS (2)
  1. LATANOPROST [Suspect]
     Active Substance: LATANOPROST
     Indication: Glaucoma
     Dosage: UNK, PM (ONCE DAILY, EVERY NIGHT BEFORE SHE GOES TO BEFORE GOING TO BED)
  2. TIMOLOL [Concomitant]
     Active Substance: TIMOLOL
     Dosage: UNK, BID (TWICE A DAY)

REACTIONS (2)
  - Device difficult to use [Unknown]
  - Intentional dose omission [Unknown]

NARRATIVE: CASE EVENT DATE: 20250101
